FAERS Safety Report 12911834 (Version 1)
Quarter: 2016Q4

REPORT INFORMATION
  Report Type: Report from Study
  Country: US (occurrence: US)
  Receive Date: 20161104
  Receipt Date: 20161104
  Transmission Date: 20170207
  Serious: Yes (Hospitalization)
  Sender: FDA-Public Use
  Company Number: US-GILEAD-2016-0241726

PATIENT
  Age: 85 Year
  Sex: Female

DRUGS (16)
  1. FORADIL [Concomitant]
     Active Substance: FORMOTEROL FUMARATE
  2. AMBRISENTAN [Suspect]
     Active Substance: AMBRISENTAN
     Indication: PULMONARY ARTERIAL HYPERTENSION
     Dosage: 5 MG, QD
     Route: 065
     Dates: start: 20100309
  3. ATENOLOL. [Concomitant]
     Active Substance: ATENOLOL
  4. ALBUTEROL                          /00139501/ [Concomitant]
     Active Substance: ALBUTEROL
  5. WARFARIN [Concomitant]
     Active Substance: WARFARIN
  6. FUROSEMIDE. [Concomitant]
     Active Substance: FUROSEMIDE
  7. SINEMET [Concomitant]
     Active Substance: CARBIDOPA\LEVODOPA
  8. DEXILANT [Concomitant]
     Active Substance: DEXLANSOPRAZOLE
  9. LEVOTHROID [Concomitant]
     Active Substance: LEVOTHYROXINE SODIUM
  10. MULTIVITAMIN                       /00097801/ [Concomitant]
     Active Substance: VITAMINS
  11. ALIVE [Concomitant]
  12. METHYLPRED [Concomitant]
     Active Substance: METHYLPREDNISOLONE
  13. HYDRALAZINE [Concomitant]
     Active Substance: HYDRALAZINE HYDROCHLORIDE
  14. ZEMPLAR [Concomitant]
     Active Substance: PARICALCITOL
  15. ALLOPURINOL. [Concomitant]
     Active Substance: ALLOPURINOL
  16. DIOVAN [Concomitant]
     Active Substance: VALSARTAN

REACTIONS (1)
  - Bronchitis [Recovered/Resolved]

NARRATIVE: CASE EVENT DATE: 20161026
